FAERS Safety Report 13277270 (Version 2)
Quarter: 2017Q1

REPORT INFORMATION
  Report Type: Spontaneous
  Country: JP (occurrence: JP)
  Receive Date: 20170228
  Receipt Date: 20170310
  Transmission Date: 20170428
  Serious: Yes (Other)
  Sender: FDA-Public Use
  Company Number: JP-BAXALTA-2017BXJ001438

PATIENT
  Age: 81 Year
  Sex: Male
  Weight: 52 kg

DRUGS (6)
  1. ADVATE [Suspect]
     Active Substance: ANTIHEMOPHILIC FACTOR, HUMAN RECOMBINANT
     Indication: HAEMOSTASIS
     Dosage: 2000 IU, 2X A DAY
     Route: 042
     Dates: start: 20170209, end: 20170219
  2. FEIBA [Suspect]
     Active Substance: ANTI-INHIBITOR COAGULANT COMPLEX
     Indication: HAEMATOMA
     Dosage: 4000 IU, 1X A DAY
     Route: 042
     Dates: start: 20170221, end: 20170221
  3. PREDNISOLONE. [Concomitant]
     Active Substance: PREDNISOLONE
     Indication: IMMUNOSUPPRESSION
     Dosage: 30 MG, 1X A DAY
     Route: 065
     Dates: start: 20170209
  4. ADVATE [Suspect]
     Active Substance: ANTIHEMOPHILIC FACTOR, HUMAN RECOMBINANT
     Indication: OFF LABEL USE
  5. ADVATE [Suspect]
     Active Substance: ANTIHEMOPHILIC FACTOR, HUMAN RECOMBINANT
     Indication: ACQUIRED HAEMOPHILIA
  6. FEIBA [Suspect]
     Active Substance: ANTI-INHIBITOR COAGULANT COMPLEX
     Indication: HAEMORRHAGE SUBCUTANEOUS
     Dosage: 4000 IU, 2X A DAY
     Route: 042
     Dates: start: 20170220, end: 20170220

REACTIONS (3)
  - Haemorrhage subcutaneous [Recovering/Resolving]
  - Haematoma [Recovering/Resolving]
  - Haemorrhage subcutaneous [Recovering/Resolving]

NARRATIVE: CASE EVENT DATE: 20170220
